FAERS Safety Report 5528995-3 (Version None)
Quarter: 2007Q4

REPORT INFORMATION
  Report Type: 
  Country: None (occurrence: None)
  Receive Date: 20071129
  Receipt Date: 20071119
  Transmission Date: 20080405
  Serious: Yes (Other)
  Sender: FDA-Public Use
  Company Number: US-AMGEN-STX249727

PATIENT
  Sex: Female
  Weight: 68.1 kg

DRUGS (11)
  1. ENBREL [Suspect]
     Indication: RHEUMATOID ARTHRITIS
     Route: 058
     Dates: start: 19990629
  2. METHOTREXATE [Concomitant]
  3. ARAVA [Concomitant]
  4. ACTONEL [Concomitant]
  5. LEUCOVORIN CALCIUM [Concomitant]
  6. FOLIC ACID [Concomitant]
  7. CLONIDINE [Concomitant]
  8. TOPROL-XL [Concomitant]
  9. VICODIN [Concomitant]
  10. CALCIUM [Concomitant]
  11. VITAMINS [Concomitant]

REACTIONS (2)
  - DEEP VEIN THROMBOSIS [None]
  - PULMONARY EMBOLISM [None]
